FAERS Safety Report 7962397-5 (Version None)
Quarter: 2011Q4

REPORT INFORMATION
  Report Type: 
  Country: None (occurrence: None)
  Receive Date: 20111206
  Receipt Date: 20111123
  Transmission Date: 20120403
  Serious: Yes (Hospitalization)
  Sender: FDA-Public Use
  Company Number: UTC-012790

PATIENT
  Age: 75 Year
  Sex: Female
  Weight: 68.18 kg

DRUGS (3)
  1. LETAIRIS [Concomitant]
  2. REMODULIN [Suspect]
     Indication: COR PULMONALE CHRONIC
     Dosage: 50.4 UG/KG (0.035 UG/KG,1 IN 1 MIN),SUBCUTANEOUS
     Route: 058
     Dates: start: 20071008
  3. COUMADIN [Concomitant]

REACTIONS (2)
  - PYREXIA [None]
  - INFUSION SITE HAEMATOMA [None]
